FAERS Safety Report 9280621 (Version 3)
Quarter: 2013Q2

REPORT INFORMATION
  Report Type: Spontaneous
  Country: DE (occurrence: DE)
  Receive Date: 20130509
  Receipt Date: 20130628
  Transmission Date: 20140414
  Serious: Yes (Death, Hospitalization, Other)
  Sender: FDA-Public Use
  Company Number: DE-JNJFOC-20130501579

PATIENT
  Age: 39 Year
  Sex: Male
  Weight: 73 kg

DRUGS (4)
  1. REMICADE [Suspect]
     Indication: CROHN^S DISEASE
     Dosage: SECOND INFUSION
     Route: 042
     Dates: start: 20130110
  2. REMICADE [Suspect]
     Indication: CROHN^S DISEASE
     Dosage: 5 MG/KG
     Route: 042
     Dates: start: 20121228
  3. SALOFALK [Suspect]
     Indication: CROHN^S DISEASE
     Route: 065
  4. PREDNISONE [Suspect]
     Indication: CROHN^S DISEASE
     Route: 065

REACTIONS (13)
  - Multi-organ failure [Fatal]
  - Neoplasm malignant [Fatal]
  - Bone marrow failure [Unknown]
  - Thrombocytopenia [Unknown]
  - Anaemia [Unknown]
  - Shock haemorrhagic [Unknown]
  - Renal disorder [Unknown]
  - Gastrointestinal carcinoma [Unknown]
  - Rectal stenosis [Unknown]
  - Rectal cancer [Unknown]
  - Large intestine perforation [Unknown]
  - Peritoneal haemorrhage [Unknown]
  - Drug ineffective [Unknown]
